FAERS Safety Report 25914349 (Version 1)
Quarter: 2025Q4

REPORT INFORMATION
  Report Type: Spontaneous
  Country: US (occurrence: US)
  Receive Date: 20251013
  Receipt Date: 20251013
  Transmission Date: 20260117
  Serious: No
  Sender: ROCHE
  Company Number: US-ROCHE-10000402702

PATIENT
  Age: 47 Year
  Sex: Female
  Weight: 83.46 kg

DRUGS (1)
  1. XOLAIR [Suspect]
     Active Substance: OMALIZUMAB
     Indication: Asthma
     Dosage: SUBCUTANEOUS INJECTION VIA 2 150MG AND ONE 75MG INJECTION. ONE 150MG INTO A LEG, THE OTHER 150MG INT
     Route: 058

REACTIONS (2)
  - No adverse event [Unknown]
  - Product dose omission in error [Unknown]

NARRATIVE: CASE EVENT DATE: 20250928
